FAERS Safety Report 12283732 (Version 1)
Quarter: 2016Q2

REPORT INFORMATION
  Report Type: Spontaneous
  Country: US (occurrence: US)
  Receive Date: 20160419
  Receipt Date: 20160419
  Transmission Date: 20160815
  Serious: No
  Sender: FDA-Public Use
  Company Number: US-BANPHARM-20154341

PATIENT
  Age: 66 Year
  Sex: Male
  Weight: 72.57 kg

DRUGS (4)
  1. ALEVE [Suspect]
     Active Substance: NAPROXEN SODIUM
     Indication: BACK PAIN
     Dosage: 2 DF, PRN,
     Route: 048
  2. BAYER LOW DOSE [Suspect]
     Active Substance: ASPIRIN
     Dosage: 1 DF, QD,
  3. BAYER GENUINE ASPIRIN [Suspect]
     Active Substance: ASPIRIN
  4. SYNTHROID [Concomitant]
     Active Substance: LEVOTHYROXINE SODIUM

REACTIONS (5)
  - Blood pressure increased [Unknown]
  - Nausea [Unknown]
  - Fatigue [Unknown]
  - Product use issue [Unknown]
  - Decreased appetite [Unknown]
